FAERS Safety Report 9457327 (Version 1)
Quarter: 2013Q3

REPORT INFORMATION
  Report Type: Report from Study
  Country: CA (occurrence: CA)
  Receive Date: 20130814
  Receipt Date: 20130814
  Transmission Date: 20140515
  Serious: Yes (Other)
  Sender: FDA-Public Use
  Company Number: PHHY2013CA085146

PATIENT
  Age: 39 Year
  Sex: Female

DRUGS (2)
  1. GILENYA [Suspect]
     Indication: RELAPSING-REMITTING MULTIPLE SCLEROSIS
     Dosage: 0.5 MG, QD
     Route: 048
     Dates: start: 20120723
  2. TOPAMAX [Concomitant]
     Dosage: 50 MG, BID
     Dates: start: 201208

REACTIONS (3)
  - Electrocardiogram Q wave abnormal [Unknown]
  - Electrocardiogram repolarisation abnormality [Unknown]
  - Electrocardiogram T wave inversion [Unknown]
